FAERS Safety Report 15296729 (Version 1)
Quarter: 2018Q3

REPORT INFORMATION
  Report Type: Spontaneous
  Country: RU (occurrence: RU)
  Receive Date: 20180820
  Receipt Date: 20180820
  Transmission Date: 20181010
  Serious: Yes (Other)
  Sender: FDA-Public Use
  Company Number: RU-EMD SERONO-9039879

PATIENT
  Sex: Female

DRUGS (8)
  1. METYPRED                           /00049601/ [Concomitant]
     Active Substance: METHYLPREDNISOLONE
     Indication: SUPPORTIVE CARE
  2. UTROGESTAN [Concomitant]
     Active Substance: PROGESTERONE
     Indication: SUPPORTIVE CARE
     Dosage: 3X200
  3. PROGESTERONE. [Concomitant]
     Active Substance: PROGESTERONE
     Indication: SUPPORTIVE CARE
     Dosage: OILY PROGESTERONE
  4. DIVIGEL [Concomitant]
     Active Substance: ESTRADIOL
     Indication: SUPPORTIVE CARE
  5. EUTHYROX [Suspect]
     Active Substance: LEVOTHYROXINE SODIUM
     Indication: BLOOD THYROID STIMULATING HORMONE INCREASED
  6. DUPHASTON [Concomitant]
     Active Substance: DYDROGESTERONE
     Indication: SUPPORTIVE CARE
  7. CHORIOGONADOTROPIN ALFA [Suspect]
     Active Substance: CHORIOGONADOTROPIN ALFA
     Indication: MANAGEMENT OF REPRODUCTION
     Dosage: 1500 (UNSPECIFIED UNITS)
  8. CLEXANE [Concomitant]
     Active Substance: ENOXAPARIN SODIUM
     Indication: SUPPORTIVE CARE
     Dosage: 0.4 (UNSPECIFIED UNIT)

REACTIONS (7)
  - Decreased embryo viability [Unknown]
  - Maternal exposure during pregnancy [Unknown]
  - Lid sulcus deepened [Unknown]
  - Ovarian hyperstimulation syndrome [Unknown]
  - Abdominal pain upper [Unknown]
  - Intentional product misuse [Unknown]
  - Weight decreased [Unknown]

NARRATIVE: CASE EVENT DATE: 2017
